FAERS Safety Report 14029871 (Version 1)
Quarter: 2017Q4

REPORT INFORMATION
  Report Type: Spontaneous
  Country: US (occurrence: US)
  Receive Date: 20171002
  Receipt Date: 20171002
  Transmission Date: 20180321
  Serious: No
  Sender: FDA-Public Use
  Company Number: US-PFIZER INC-2017423559

PATIENT
  Age: 4 Year
  Sex: Male

DRUGS (1)
  1. ADVIL [Suspect]
     Active Substance: IBUPROFEN
     Dosage: UNK

REACTIONS (3)
  - Vomiting [Recovered/Resolved]
  - Accidental exposure to product by child [Recovered/Resolved]
  - Failure of child resistant mechanism for pharmaceutical product [Recovered/Resolved]
